FAERS Safety Report 21732047 (Version 2)
Quarter: 2022Q4

REPORT INFORMATION
  Report Type: Spontaneous
  Country: TN (occurrence: TN)
  Receive Date: 20221215
  Receipt Date: 20221222
  Transmission Date: 20230112
  Serious: Yes (Other)
  Sender: FDA-Public Use
  Company Number: TN-MLMSERVICE-20221130-3951573-1

PATIENT
  Age: 15 Year
  Sex: Female

DRUGS (1)
  1. ZOLEDRONIC ACID [Suspect]
     Active Substance: ZOLEDRONIC ACID
     Indication: Chronic recurrent multifocal osteomyelitis
     Route: 041
     Dates: start: 2018

REACTIONS (2)
  - Generalised tonic-clonic seizure [Recovered/Resolved]
  - Eyeball avulsion [Recovered/Resolved]
